FAERS Safety Report 6687627-1 (Version None)
Quarter: 2010Q2

REPORT INFORMATION
  Report Type: 
  Country: None (occurrence: None)
  Receive Date: 20100414
  Receipt Date: 20100414
  Transmission Date: 20101027
  Serious: Yes (Other)
  Sender: FDA-Public Use
  Company Number: 8041019

PATIENT
  Sex: Female
  Weight: 60 kg

DRUGS (1)
  1. KEPPRA [Suspect]
     Dosage: (1500 MG, 500-0-1000 MG DOSE FREQ: DAILY)

REACTIONS (2)
  - CAESAREAN SECTION [None]
  - PREGNANCY [None]
